FAERS Safety Report 9910088 (Version 1)
Quarter: 2014Q1

REPORT INFORMATION
  Report Type: Spontaneous
  Country: US (occurrence: None)
  Receive Date: 20140218
  Receipt Date: 20140218
  Transmission Date: 20141002
  Serious: No
  Sender: FDA-Public Use
  Company Number: None

PATIENT
  Age: 71 Year
  Sex: Male
  Weight: 86.18 kg

DRUGS (1)
  1. XARELTO 20MG JANSSEN [Suspect]

REACTIONS (3)
  - Abdominal discomfort [None]
  - Faeces soft [None]
  - Gastrointestinal motility disorder [None]
